FAERS Safety Report 20472861 (Version 1)
Quarter: 2022Q1

REPORT INFORMATION
  Report Type: Spontaneous
  Country: US (occurrence: US)
  Receive Date: 20220215
  Receipt Date: 20220215
  Transmission Date: 20220423
  Serious: No
  Sender: FDA-Public Use
  Company Number: US-TEVA-2022-US-2006858

PATIENT
  Age: 55 Year
  Sex: Female

DRUGS (1)
  1. WARFARIN SODIUM [Suspect]
     Active Substance: WARFARIN SODIUM
     Route: 065

REACTIONS (6)
  - Blood blister [Unknown]
  - Pruritus [Unknown]
  - Rash erythematous [Unknown]
  - Urticaria [Unknown]
  - Nodular rash [Unknown]
  - Drug hypersensitivity [Unknown]
